FAERS Safety Report 8110926-3 (Version None)
Quarter: 2012Q1

REPORT INFORMATION
  Report Type: 
  Country: None (occurrence: None)
  Receive Date: 20120203
  Receipt Date: 20110725
  Transmission Date: 20120608
  Serious: No
  Sender: FDA-Public Use
  Company Number: US-GLAXOSMITHKLINE-A0789398A

PATIENT
  Age: 14 Year
  Sex: Male

DRUGS (3)
  1. FLUVOXAMINE MALEATE [Concomitant]
  2. MARIJUANA [Concomitant]
  3. LAMICTAL [Suspect]
     Indication: BIPOLAR DISORDER
     Route: 048
     Dates: start: 20050101

REACTIONS (4)
  - ANGER [None]
  - HYPERSOMNIA [None]
  - INTERMITTENT EXPLOSIVE DISORDER [None]
  - MOOD ALTERED [None]
